FAERS Safety Report 15165733 (Version 1)
Quarter: 2018Q3

REPORT INFORMATION
  Report Type: Spontaneous
  Country: FR (occurrence: FR)
  Receive Date: 20180719
  Receipt Date: 20180719
  Transmission Date: 20181010
  Serious: Yes (Death, Other)
  Sender: FDA-Public Use
  Company Number: FR-RECORDATI RARE DISEASES INC.-FR-R13005-18-00202

PATIENT
  Age: 45 Year
  Sex: Female

DRUGS (9)
  1. VINDESINE [Suspect]
     Active Substance: VINDESINE
     Indication: UTERINE LEIOMYOSARCOMA
     Route: 065
  2. DOXORUBICIN [Suspect]
     Active Substance: DOXORUBICIN
     Indication: UTERINE LEIOMYOSARCOMA
     Route: 065
  3. DACTINOMYCIN [Suspect]
     Active Substance: DACTINOMYCIN
     Route: 065
  4. CYCLOPHOSPHAMIDE. [Suspect]
     Active Substance: CYCLOPHOSPHAMIDE
     Indication: UTERINE LEIOMYOSARCOMA
     Route: 065
  5. CISPLATIN. [Suspect]
     Active Substance: CISPLATIN
     Indication: UTERINE LEIOMYOSARCOMA
     Route: 065
  6. VINCRISTINE [Suspect]
     Active Substance: VINCRISTINE
     Indication: UTERINE LEIOMYOSARCOMA
     Route: 065
  7. IFOSFAMIDE. [Suspect]
     Active Substance: IFOSFAMIDE
     Indication: UTERINE LEIOMYOSARCOMA
     Route: 065
  8. DACTINOMYCIN [Suspect]
     Active Substance: DACTINOMYCIN
     Indication: UTERINE LEIOMYOSARCOMA
     Route: 065
  9. DETICENE [Suspect]
     Active Substance: DACARBAZINE
     Indication: UTERINE LEIOMYOSARCOMA
     Route: 065

REACTIONS (6)
  - Microangiopathic haemolytic anaemia [Fatal]
  - Therapy non-responder [Unknown]
  - Metastases to lymph nodes [Fatal]
  - Pulmonary alveolar haemorrhage [Fatal]
  - Disseminated intravascular coagulation [Fatal]
  - Metastases to lung [Fatal]
